FAERS Safety Report 14817031 (Version 2)
Quarter: 2025Q3

REPORT INFORMATION
  Report Type: Spontaneous
  Country: EU (occurrence: EU)
  Receive Date: 20180426
  Receipt Date: 20250918
  Transmission Date: 20251021
  Serious: Yes (Congenital Anomaly, Other)
  Sender: MYLAN
  Company Number: EU-ABBOTT-16X-056-1258273-00

PATIENT
  Age: 3 Year
  Sex: Male

DRUGS (36)
  1. VENLAFAXINE HYDROCHLORIDE [Suspect]
     Active Substance: VENLAFAXINE HYDROCHLORIDE
     Indication: Product used for unknown indication
     Dosage: 75 MILLIGRAM, QD (DAILY)
     Dates: start: 2011, end: 20111005
  2. VENLAFAXINE HYDROCHLORIDE [Suspect]
     Active Substance: VENLAFAXINE HYDROCHLORIDE
     Dosage: 75 MILLIGRAM, QD (DAILY)
     Route: 064
     Dates: start: 2011, end: 20111005
  3. VENLAFAXINE HYDROCHLORIDE [Suspect]
     Active Substance: VENLAFAXINE HYDROCHLORIDE
     Dosage: 75 MILLIGRAM, QD (DAILY)
     Route: 064
     Dates: start: 2011, end: 20111005
  4. VENLAFAXINE HYDROCHLORIDE [Suspect]
     Active Substance: VENLAFAXINE HYDROCHLORIDE
     Dosage: 75 MILLIGRAM, QD (DAILY)
     Dates: start: 2011, end: 20111005
  5. FLUVOXAMINE MALEATE [Suspect]
     Active Substance: FLUVOXAMINE MALEATE
     Indication: Product used for unknown indication
     Dates: start: 20111005, end: 20120602
  6. FLUVOXAMINE MALEATE [Suspect]
     Active Substance: FLUVOXAMINE MALEATE
     Route: 064
     Dates: start: 20111005, end: 20120602
  7. FLUVOXAMINE MALEATE [Suspect]
     Active Substance: FLUVOXAMINE MALEATE
     Route: 064
     Dates: start: 20111005, end: 20120602
  8. FLUVOXAMINE MALEATE [Suspect]
     Active Substance: FLUVOXAMINE MALEATE
     Dates: start: 20111005, end: 20120602
  9. FLUVOXAMINE [Suspect]
     Active Substance: FLUVOXAMINE
     Indication: Product used for unknown indication
  10. FLUVOXAMINE [Suspect]
     Active Substance: FLUVOXAMINE
     Route: 064
  11. FLUVOXAMINE [Suspect]
     Active Substance: FLUVOXAMINE
     Route: 064
  12. FLUVOXAMINE [Suspect]
     Active Substance: FLUVOXAMINE
  13. VENLAFAXINE [Suspect]
     Active Substance: VENLAFAXINE HYDROCHLORIDE
     Indication: Product used for unknown indication
  14. VENLAFAXINE [Suspect]
     Active Substance: VENLAFAXINE HYDROCHLORIDE
     Route: 064
  15. VENLAFAXINE [Suspect]
     Active Substance: VENLAFAXINE HYDROCHLORIDE
     Route: 064
  16. VENLAFAXINE [Suspect]
     Active Substance: VENLAFAXINE HYDROCHLORIDE
  17. ABILIFY [Suspect]
     Active Substance: ARIPIPRAZOLE
     Indication: Product used for unknown indication
     Dosage: 75 MG, QD
     Dates: start: 2011, end: 20111005
  18. ABILIFY [Suspect]
     Active Substance: ARIPIPRAZOLE
     Dosage: 75 MG, QD
     Route: 064
     Dates: start: 2011, end: 20111005
  19. ABILIFY [Suspect]
     Active Substance: ARIPIPRAZOLE
     Dosage: 75 MG, QD
     Route: 064
     Dates: start: 2011, end: 20111005
  20. ABILIFY [Suspect]
     Active Substance: ARIPIPRAZOLE
     Dosage: 75 MG, QD
     Dates: start: 2011, end: 20111005
  21. VALIUM [Suspect]
     Active Substance: DIAZEPAM
     Indication: Product used for unknown indication
  22. VALIUM [Suspect]
     Active Substance: DIAZEPAM
  23. VALIUM [Suspect]
     Active Substance: DIAZEPAM
     Route: 064
  24. VALIUM [Suspect]
     Active Substance: DIAZEPAM
     Route: 064
  25. VALIUM [Suspect]
     Active Substance: DIAZEPAM
     Dates: start: 20111005, end: 20120602
  26. VALIUM [Suspect]
     Active Substance: DIAZEPAM
     Dates: start: 20111005, end: 20120602
  27. VALIUM [Suspect]
     Active Substance: DIAZEPAM
     Route: 064
     Dates: start: 20111005, end: 20120602
  28. VALIUM [Suspect]
     Active Substance: DIAZEPAM
     Route: 064
     Dates: start: 20111005, end: 20120602
  29. CHLORPROMAZINE [Suspect]
     Active Substance: CHLORPROMAZINE
     Indication: Product used for unknown indication
     Dates: start: 20111005, end: 20120602
  30. CHLORPROMAZINE [Suspect]
     Active Substance: CHLORPROMAZINE
     Route: 064
     Dates: start: 20111005, end: 20120602
  31. CHLORPROMAZINE [Suspect]
     Active Substance: CHLORPROMAZINE
     Route: 064
     Dates: start: 20111005, end: 20120602
  32. CHLORPROMAZINE [Suspect]
     Active Substance: CHLORPROMAZINE
     Dates: start: 20111005, end: 20120602
  33. VALIUM [Suspect]
     Active Substance: DIAZEPAM
     Indication: Product used for unknown indication
  34. VALIUM [Suspect]
     Active Substance: DIAZEPAM
     Route: 064
  35. VALIUM [Suspect]
     Active Substance: DIAZEPAM
     Route: 064
  36. VALIUM [Suspect]
     Active Substance: DIAZEPAM

REACTIONS (4)
  - Cystic fibrosis [Not Recovered/Not Resolved]
  - Asthma [Unknown]
  - Attention deficit hyperactivity disorder [Unknown]
  - Foetal exposure during pregnancy [Unknown]

NARRATIVE: CASE EVENT DATE: 20120602
